FAERS Safety Report 6017383-1 (Version None)
Quarter: 2008Q4

REPORT INFORMATION
  Report Type: 
  Country: None (occurrence: None)
  Receive Date: 20081223
  Receipt Date: 20081212
  Transmission Date: 20090506
  Serious: Yes (Hospitalization)
  Sender: FDA-Public Use
  Company Number: PHHY2008JP27611

PATIENT
  Sex: Female

DRUGS (11)
  1. LAMISIL [Suspect]
     Dosage: 125 MG, QD
     Route: 048
     Dates: start: 20081008, end: 20081105
  2. TOFRANIL [Suspect]
     Dosage: 50 MG, UNK
     Route: 048
     Dates: start: 20081015, end: 20081103
  3. SELBEX [Concomitant]
     Dosage: 100 MG
     Route: 048
  4. SENNARIDE [Concomitant]
     Dosage: 24 MG
     Route: 048
  5. EPALRESTAT [Concomitant]
     Dosage: 150 MG
     Route: 048
  6. GOODMIN [Concomitant]
     Dosage: 0.25 MG
     Route: 048
  7. MEXITIL [Concomitant]
     Dosage: 300 MG
     Route: 048
  8. INSULIN HUMAN [Concomitant]
     Dosage: 24IU
  9. TEGRETOL [Concomitant]
     Dosage: 300 MG
     Route: 048
  10. ALPRAZOLAM [Concomitant]
     Dosage: 0.8 MG
     Route: 048
  11. ALLEGRA [Concomitant]
     Dosage: 120 MG
     Route: 048

REACTIONS (8)
  - BLOOD LACTATE DEHYDROGENASE INCREASED [None]
  - EOSINOPHIL COUNT INCREASED [None]
  - ERYTHEMA [None]
  - LYMPHOCYTE COUNT DECREASED [None]
  - NEUTROPHIL COUNT INCREASED [None]
  - ORAL MUCOSA EROSION [None]
  - PYREXIA [None]
  - STEVENS-JOHNSON SYNDROME [None]
